FAERS Safety Report 12874617 (Version 5)
Quarter: 2017Q2

REPORT INFORMATION
  Report Type: Spontaneous
  Country: GB (occurrence: GB)
  Receive Date: 20161021
  Receipt Date: 20170530
  Transmission Date: 20170830
  Serious: Yes (Hospitalization, Other)
  Sender: FDA-Public Use
  Company Number: GB-009507513-1610GBR011659

PATIENT
  Age: 71 Year
  Sex: Female

DRUGS (29)
  1. REVLIMID [Suspect]
     Active Substance: LENALIDOMIDE
     Dosage: (10 MG, 1 IN 1 D)
     Route: 048
     Dates: start: 20160817
  2. AMLODIPINE [Concomitant]
     Active Substance: AMLODIPINE BESYLATE
     Indication: HYPERTENSION
     Dosage: UNK
     Route: 065
  3. ACETAMINOPHEN. [Concomitant]
     Active Substance: ACETAMINOPHEN
     Indication: NON-CARDIAC CHEST PAIN
     Dosage: 1000 MG, QID
     Route: 048
  4. ZOLEDRONIC ACID [Concomitant]
     Active Substance: ZOLEDRONIC ACID
     Indication: PROPHYLAXIS
     Dosage: 3.5 MG, QM
     Route: 041
     Dates: start: 20160606
  5. OXYLAN [Concomitant]
     Indication: CHEST PAIN
  6. ALLOPURINOL. [Concomitant]
     Active Substance: ALLOPURINOL
     Indication: PROPHYLAXIS
     Dosage: 300 MG, QD
     Route: 048
     Dates: start: 20160803
  7. NYSTATIN. [Concomitant]
     Active Substance: NYSTATIN
     Indication: ORAL CANDIDIASIS
     Dosage: 4 ML, QID
     Route: 048
     Dates: start: 20160907
  8. DEXAMETHASONE. [Suspect]
     Active Substance: DEXAMETHASONE
     Dosage: 5.7143 MG DAILY (40 MG, DAYS 1, 8, 15 AND 22 IN 28 D)
     Route: 048
  9. TINZAPARIN SODIUM [Concomitant]
     Active Substance: TINZAPARIN SODIUM
     Indication: THROMBOSIS PROPHYLAXIS
     Dosage: UNK
     Dates: start: 20160803
  10. RAMIPRIL. [Concomitant]
     Active Substance: RAMIPRIL
     Indication: HYPERTENSION
     Dosage: UNK
     Route: 065
  11. NYSTATIN. [Concomitant]
     Active Substance: NYSTATIN
     Indication: ORAL PAIN
     Dosage: 4 ML, QID
     Route: 048
     Dates: start: 20160826, end: 20160901
  12. ACETAMINOPHEN. [Concomitant]
     Active Substance: ACETAMINOPHEN
     Indication: ARTHRALGIA
     Dosage: UNKNOWN
     Route: 065
  13. REVLIMID [Suspect]
     Active Substance: LENALIDOMIDE
     Indication: PLASMA CELL MYELOMA
     Dosage: 7.5 DAILY (10 MG, 1-21 IN 28 D)
     Route: 048
     Dates: start: 20160803, end: 20160813
  14. ZOMETA [Concomitant]
     Active Substance: ZOLEDRONIC ACID
     Indication: PROPHYLAXIS
  15. OXYNORM [Concomitant]
     Active Substance: OXYCODONE HYDROCHLORIDE
     Indication: CHEST PAIN
     Dosage: 40 MILLIGRAM  (5 MG)
     Route: 065
  16. OXYCODONE [Concomitant]
     Active Substance: OXYCODONE
     Indication: NON-CARDIAC CHEST PAIN
     Dosage: 20 MG (10 MG, 2 IN 1 D)
     Route: 048
     Dates: start: 20160606
  17. OXYCODONE [Concomitant]
     Active Substance: OXYCODONE
     Indication: CHEST PAIN
     Dosage: 60 MG (30 MG, 2 IN 1 D)
     Route: 065
  18. OXYCODONE [Concomitant]
     Active Substance: OXYCODONE
     Dosage: UNKNOWN
     Route: 065
  19. NYSTATIN. [Concomitant]
     Active Substance: NYSTATIN
     Indication: DYSPHAGIA
     Dosage: 4 ML, QID
     Route: 048
     Dates: start: 20161118, end: 20161125
  20. METOCLOPRAMIDE. [Concomitant]
     Active Substance: METOCLOPRAMIDE
     Indication: GASTROOESOPHAGEAL REFLUX DISEASE
     Dosage: 10 MG, QID
     Route: 048
     Dates: start: 20160803
  21. ACYCLOVIR. [Concomitant]
     Active Substance: ACYCLOVIR
     Indication: INFECTION PROPHYLAXIS
     Dosage: 400 MG, BID
     Route: 048
     Dates: start: 20160803
  22. DEXAMETHASONE. [Suspect]
     Active Substance: DEXAMETHASONE
     Indication: PLASMA CELL MYELOMA
     Dosage: 5.7143 MG DAILY (40 MG, DAYS 1, 8, 15 AND 22 IN 28 D)
     Route: 048
     Dates: start: 20160803, end: 20160813
  23. OXYLAN [Concomitant]
     Indication: ARTHRALGIA
     Dosage: 30 MG, BID
     Route: 065
  24. OXYNORM [Concomitant]
     Active Substance: OXYCODONE HYDROCHLORIDE
     Indication: ARTHRALGIA
  25. OMEPRAZOLE. [Concomitant]
     Active Substance: OMEPRAZOLE
     Indication: GASTRITIS PROPHYLAXIS
     Dosage: 20 MG, QD
     Route: 048
     Dates: start: 20160803
  26. OXYCODONE [Concomitant]
     Active Substance: OXYCODONE
     Indication: ARTHRALGIA
     Dosage: UNKNOWN
     Route: 065
  27. FLUCONAZOLE. [Concomitant]
     Active Substance: FLUCONAZOLE
     Indication: DYSPHAGIA
     Dosage: 100 MG, QD
     Route: 048
     Dates: start: 20160826, end: 20160901
  28. FLUCONAZOLE. [Concomitant]
     Active Substance: FLUCONAZOLE
     Indication: ORAL CANDIDIASIS
     Dosage: 100 MG, TID
     Route: 048
     Dates: start: 20160907
  29. FLUCONAZOLE. [Concomitant]
     Active Substance: FLUCONAZOLE
     Indication: ORAL PAIN
     Dosage: 100 MG, TID
     Route: 048
     Dates: start: 20161007, end: 20161014

REACTIONS (12)
  - Oral pain [Not Recovered/Not Resolved]
  - External ear cellulitis [Recovering/Resolving]
  - Sepsis [Recovered/Resolved]
  - Dry mouth [Not Recovered/Not Resolved]
  - Constipation [Unknown]
  - Atrial fibrillation [Recovered/Resolved]
  - Blood creatinine increased [Recovered/Resolved]
  - Decreased appetite [Unknown]
  - Oral candidiasis [Not Recovered/Not Resolved]
  - Neuropathy peripheral [Not Recovered/Not Resolved]
  - Lethargy [Not Recovered/Not Resolved]
  - Dysphagia [Recovering/Resolving]

NARRATIVE: CASE EVENT DATE: 20160812
